FAERS Safety Report 18745011 (Version 1)
Quarter: 2021Q1

REPORT INFORMATION
  Report Type: Spontaneous
  Country: US (occurrence: US)
  Receive Date: 20210114
  Receipt Date: 20210114
  Transmission Date: 20210419
  Serious: Yes (Other)
  Sender: FDA-Public Use
  Company Number: None

PATIENT
  Age: 77 Year
  Sex: Female
  Weight: 102.3 kg

DRUGS (1)
  1. CHLORHEXIDINE GLUCONATE ORAL RINSE, 0.12% [Suspect]
     Active Substance: CHLORHEXIDINE GLUCONATE
     Indication: OROPHARYNGEAL DISCOMFORT
     Route: 002
     Dates: start: 20201023, end: 20201028

REACTIONS (5)
  - Candida infection [None]
  - Staphylococcal infection [None]
  - Sputum culture [None]
  - Mycobacterium test positive [None]
  - Burkholderia test positive [None]

NARRATIVE: CASE EVENT DATE: 20201029
